FAERS Safety Report 23692905 (Version 5)
Quarter: 2025Q4

REPORT INFORMATION
  Report Type: Spontaneous
  Country: US (occurrence: US)
  Receive Date: 20240401
  Receipt Date: 20251230
  Transmission Date: 20260117
  Serious: No
  Sender: SANOFI AVENTIS
  Company Number: US-SA-SAC20240326000161

PATIENT
  Age: 18 Year
  Sex: Male

DRUGS (2)
  1. DUPIXENT [Suspect]
     Active Substance: DUPILUMAB
     Indication: Eczema
     Dosage: 600 MG, 1X
     Route: 058
     Dates: start: 20240307, end: 20240307
  2. DUPIXENT [Suspect]
     Active Substance: DUPILUMAB
     Indication: Dermatitis atopic
     Dosage: 300 MG, QOW
     Route: 058
     Dates: start: 20240321, end: 20251212

REACTIONS (11)
  - Dry skin [Unknown]
  - Feeling hot [Unknown]
  - Fungal skin infection [Unknown]
  - Erythema [Unknown]
  - Eczema [Unknown]
  - Skin irritation [Unknown]
  - Sensitive skin [Unknown]
  - Rash erythematous [Unknown]
  - Pruritus [Unknown]
  - Rash macular [Not Recovered/Not Resolved]
  - Therapeutic response shortened [Unknown]

NARRATIVE: CASE EVENT DATE: 20240301
